FAERS Safety Report 11866502 (Version 2)
Quarter: 2016Q4

REPORT INFORMATION
  Report Type: Spontaneous
  Country: DK (occurrence: DK)
  Receive Date: 20151224
  Receipt Date: 20161201
  Transmission Date: 20170206
  Serious: Yes (Death, Hospitalization, Other)
  Sender: FDA-Public Use
  Company Number: DK-ROCHE-1683188

PATIENT
  Age: 63 Year
  Sex: Female

DRUGS (2)
  1. MABTHERA [Suspect]
     Active Substance: RITUXIMAB
     Indication: B-CELL LYMPHOMA
     Dosage: 4 TREATMENTS WITH 1 WEEK INTERVALS
     Route: 042
     Dates: start: 20151020
  2. METOPROLOL TARTRATE. [Concomitant]
     Active Substance: METOPROLOL TARTRATE
     Indication: HYPERTENSION
     Route: 065
     Dates: start: 20151022

REACTIONS (21)
  - Hepatic congestion [Unknown]
  - Oxygen saturation decreased [Unknown]
  - Dyspnoea [Unknown]
  - Pain in extremity [Unknown]
  - Intra-abdominal fluid collection [Unknown]
  - Hepatic failure [Fatal]
  - Hypoxia [Unknown]
  - Pneumonia [Unknown]
  - Blood disorder [Unknown]
  - Gallbladder enlargement [Unknown]
  - Multiple organ dysfunction syndrome [Unknown]
  - Musculoskeletal discomfort [Unknown]
  - Cardiac disorder [Unknown]
  - Renal failure [Unknown]
  - Pleural effusion [Unknown]
  - Haemoglobin decreased [Unknown]
  - Abdominal pain [Unknown]
  - Hypotension [Unknown]
  - Splenic infarction [Unknown]
  - Hepatic function abnormal [Unknown]
  - Pyrexia [Unknown]

NARRATIVE: CASE EVENT DATE: 201511
